FAERS Safety Report 4559051-9 (Version None)
Quarter: 2005Q1

REPORT INFORMATION
  Report Type: 
  Country: None (occurrence: None)
  Receive Date: 20050124
  Receipt Date: 20050111
  Transmission Date: 20050727
  Serious: Yes (Death, Hospitalization)
  Sender: FDA-Public Use
  Company Number: US-JNJFOC-20040704438

PATIENT
  Sex: Male

DRUGS (4)
  1. REMICADE [Suspect]
     Route: 042
  2. REMICADE [Suspect]
     Indication: CROHN'S DISEASE
     Route: 042
  3. 6MP [Concomitant]
     Indication: CROHN'S DISEASE
  4. PREDNISONE [Concomitant]
     Indication: CROHN'S DISEASE

REACTIONS (16)
  - ABDOMINAL ABSCESS [None]
  - ABSCESS [None]
  - ABSCESS INTESTINAL [None]
  - ANGIOSARCOMA [None]
  - ASTHMA [None]
  - COLONIC HAEMATOMA [None]
  - CONVULSION [None]
  - CUSHING'S SYNDROME [None]
  - DRUG TOXICITY [None]
  - ENTERITIS [None]
  - HAEMOGLOBIN DECREASED [None]
  - HEADACHE [None]
  - INTESTINAL HAEMORRHAGE [None]
  - INTESTINAL PERFORATION [None]
  - POST PROCEDURAL HAEMORRHAGE [None]
  - THERAPY NON-RESPONDER [None]
